FAERS Safety Report 8919803 (Version 1)
Quarter: 2012Q4

REPORT INFORMATION
  Report Type: Spontaneous
  Country: FR (occurrence: None)
  Receive Date: 20121114
  Receipt Date: 20121114
  Transmission Date: 20130627
  Serious: Yes (Death)
  Sender: FDA-Public Use
  Company Number: APL-2012-00231

PATIENT
  Age: 59 Year
  Sex: Female

DRUGS (10)
  1. PECFENT [Suspect]
     Dosage: pm maximum 4 per day
     Route: 045
     Dates: start: 2012, end: 20121016
  2. PECFENT [Suspect]
     Dosage: pm maximum 4 per day
     Route: 045
     Dates: start: 2012, end: 20121016
  3. OXYCONTIN [Suspect]
     Dosage: 1 DF
     Route: 048
     Dates: start: 201203, end: 20121016
  4. OXYCONTIN [Suspect]
     Dosage: 1 DF
     Route: 048
     Dates: start: 201203, end: 20121016
  5. OXYNORM [Suspect]
     Dosage: maximum 6 capsules per day
     Route: 048
     Dates: start: 201203, end: 20121016
  6. OXYNORM [Suspect]
     Dosage: maximum 6 capsules per day
     Route: 048
     Dates: start: 201203, end: 20121016
  7. LEVOTHYROX (LEVOTHYROXINE SODIUM) INFUSION [Concomitant]
  8. INEXIUM (ESOMEPRAZOLE MAGNESIUM) [Concomitant]
  9. LASILIX [Concomitant]
  10. SANDOSTATINE (OCTREOTIDE ACETATE) [Concomitant]

REACTIONS (5)
  - Respiratory distress [None]
  - Hypotension [None]
  - Overdose [None]
  - Pulmonary embolism [None]
  - Lung disorder [None]
